FAERS Safety Report 16464269 (Version 3)
Quarter: 2019Q3

REPORT INFORMATION
  Report Type: Spontaneous
  Country: US (occurrence: US)
  Receive Date: 20190621
  Receipt Date: 20190925
  Transmission Date: 20191004
  Serious: Yes (Other)
  Sender: FDA-Public Use
  Company Number: US-ASTRAZENECA-2018SF65138

PATIENT
  Sex: Male

DRUGS (18)
  1. NEXIUM 24HR [Suspect]
     Active Substance: ESOMEPRAZOLE MAGNESIUM
     Route: 048
  2. CIPROFLOXACIN. [Concomitant]
     Active Substance: CIPROFLOXACIN
     Indication: ANTIBIOTIC THERAPY
  3. ZANTAC  (OTC) [Concomitant]
  4. NEXIUM [Suspect]
     Active Substance: ESOMEPRAZOLE MAGNESIUM
     Route: 048
  5. PRILOSEC [Suspect]
     Active Substance: OMEPRAZOLE MAGNESIUM
     Indication: DYSPEPSIA
     Route: 048
  6. PRILOSEC [Suspect]
     Active Substance: OMEPRAZOLE MAGNESIUM
     Indication: GASTROOESOPHAGEAL REFLUX DISEASE
     Dosage: GENERIC
     Route: 065
     Dates: start: 2000
  7. PRILOSEC [Suspect]
     Active Substance: OMEPRAZOLE MAGNESIUM
     Indication: DYSPEPSIA
     Dosage: GENERIC
     Route: 065
     Dates: start: 2000
  8. LOSARTAN. [Concomitant]
     Active Substance: LOSARTAN
  9. PRILOSEC OTC [Suspect]
     Active Substance: OMEPRAZOLE MAGNESIUM
     Route: 048
  10. ZEGERID [Suspect]
     Active Substance: OMEPRAZOLE\SODIUM BICARBONATE
     Route: 065
  11. NEXIUM [Suspect]
     Active Substance: ESOMEPRAZOLE MAGNESIUM
     Route: 048
     Dates: start: 1992
  12. DIOVAN [Concomitant]
     Active Substance: VALSARTAN
  13. PRILOSEC [Suspect]
     Active Substance: OMEPRAZOLE MAGNESIUM
     Indication: DYSPEPSIA
     Dosage: GENERIC
     Route: 065
     Dates: start: 2000
  14. PROTONIX [Suspect]
     Active Substance: PANTOPRAZOLE SODIUM
     Route: 065
  15. PRILOSEC [Suspect]
     Active Substance: OMEPRAZOLE MAGNESIUM
     Indication: GASTROOESOPHAGEAL REFLUX DISEASE
     Route: 048
  16. PRILOSEC [Suspect]
     Active Substance: OMEPRAZOLE MAGNESIUM
     Indication: GASTROOESOPHAGEAL REFLUX DISEASE
     Dosage: GENERIC
     Route: 065
     Dates: start: 2000
  17. ZEGERID [Suspect]
     Active Substance: OMEPRAZOLE\SODIUM BICARBONATE
     Dosage: GENERIC
     Route: 065
  18. CELEBREX [Concomitant]
     Active Substance: CELECOXIB
     Indication: CHEST PAIN

REACTIONS (4)
  - Renal failure [Not Recovered/Not Resolved]
  - Rebound acid hypersecretion [Unknown]
  - Renal injury [Unknown]
  - Chronic kidney disease [Unknown]
